FAERS Safety Report 23944134 (Version 2)
Quarter: 2024Q3

REPORT INFORMATION
  Report Type: Spontaneous
  Country: AU (occurrence: AU)
  Receive Date: 20240606
  Receipt Date: 20240710
  Transmission Date: 20241017
  Serious: No
  Sender: TOLMAR
  Company Number: AU-TOLMAR, INC.-24AU049268

PATIENT
  Sex: Male

DRUGS (2)
  1. ELIGARD [Suspect]
     Active Substance: LEUPROLIDE ACETATE
     Indication: Prostate cancer
     Dosage: 22.5 MILLIGRAM, Q 3 MONTH
  2. DEVICE [Suspect]
     Active Substance: DEVICE
     Indication: Prostate cancer
     Dosage: UNK

REACTIONS (3)
  - Intercepted product preparation error [Unknown]
  - Product packaging quantity issue [Unknown]
  - Syringe issue [Unknown]
